FAERS Safety Report 10545370 (Version 1)
Quarter: 2014Q4

REPORT INFORMATION
  Report Type: Spontaneous
  Country: AU (occurrence: AU)
  Receive Date: 20141027
  Receipt Date: 20141027
  Transmission Date: 20150529
  Serious: Yes (Other)
  Sender: FDA-Public Use
  Company Number: AU-009507513-1410AUS011274

PATIENT
  Age: 44 Year
  Sex: Male
  Weight: 75 kg

DRUGS (1)
  1. CELESTONE CHRONODOSE [Suspect]
     Active Substance: BETAMETHASONE ACETATE\BETAMETHASONE SODIUM PHOSPHATE
     Dosage: 1 DOSE UNSPEC 1 TIME
     Dates: start: 20140822

REACTIONS (2)
  - Hemiplegia [Not Recovered/Not Resolved]
  - Spinal cord oedema [Not Recovered/Not Resolved]

NARRATIVE: CASE EVENT DATE: 20140822
